FAERS Safety Report 26188874 (Version 1)
Quarter: 2025Q4

REPORT INFORMATION
  Report Type: Spontaneous
  Country: CN (occurrence: CN)
  Receive Date: 20251222
  Receipt Date: 20251222
  Transmission Date: 20260117
  Serious: Yes (Hospitalization, Other)
  Sender: STRIDES
  Company Number: CN-STRIDES ARCOLAB LIMITED-2025SP015767

PATIENT
  Age: 65 Year
  Sex: Male

DRUGS (8)
  1. MYCOPHENOLATE MOFETIL [Suspect]
     Active Substance: MYCOPHENOLATE MOFETIL
     Indication: Immune-mediated myocarditis
     Dosage: UNK
     Route: 065
     Dates: start: 202306
  2. ESMOLOL [Suspect]
     Active Substance: ESMOLOL HYDROCHLORIDE
     Indication: Ventricular tachycardia
     Dosage: UNK
     Route: 065
     Dates: start: 202306
  3. METHYLPREDNISOLONE [Concomitant]
     Active Substance: METHYLPREDNISOLONE
     Indication: Immune-mediated myocarditis
     Dosage: 240-480MG
     Route: 065
     Dates: start: 202306, end: 202306
  4. AMIODARONE [Concomitant]
     Active Substance: AMIODARONE
     Indication: Ventricular tachycardia
     Dosage: UNK
     Route: 065
     Dates: start: 202306, end: 202306
  5. Immunoglobulin [Concomitant]
     Indication: Immune-mediated myocarditis
     Dosage: 10-30G
     Route: 042
     Dates: start: 202306, end: 202306
  6. TORIPALIMAB [Concomitant]
     Active Substance: TORIPALIMAB
     Indication: Oesophageal squamous cell carcinoma
     Dosage: RECEIVED 4 CYCLES
     Route: 065
     Dates: start: 202303, end: 2023
  7. PACLITAXEL [Concomitant]
     Active Substance: PACLITAXEL
     Indication: Oesophageal squamous cell carcinoma
     Dosage: RECEIVED 4 CYCLES
     Route: 065
     Dates: start: 202303, end: 2023
  8. NEDAPLATIN [Concomitant]
     Active Substance: NEDAPLATIN
     Indication: Oesophageal squamous cell carcinoma
     Dosage: RECEIVED 4 CYCLES
     Route: 065
     Dates: start: 202303, end: 2023

REACTIONS (4)
  - Renal impairment [Unknown]
  - Hepatic function abnormal [Unknown]
  - Blood lactic acid increased [Unknown]
  - Drug ineffective for unapproved indication [Unknown]

NARRATIVE: CASE EVENT DATE: 20230601
